FAERS Safety Report 7985986-0 (Version None)
Quarter: 2011Q4

REPORT INFORMATION
  Report Type: 
  Country: None (occurrence: None)
  Receive Date: 20111216
  Receipt Date: 20111206
  Transmission Date: 20120403
  Serious: Yes (Hospitalization, Other)
  Sender: FDA-Public Use
  Company Number: US-MERCK-1108USA02424

PATIENT
  Age: 59 Year
  Sex: Female

DRUGS (3)
  1. ACTONEL [Concomitant]
     Indication: OSTEOPOROSIS
     Route: 065
     Dates: start: 20000101, end: 20000101
  2. FOSAMAX [Suspect]
     Indication: OSTEOPOROSIS
     Route: 048
     Dates: start: 19980101, end: 20100801
  3. VITAMIN D (UNSPECIFIED) [Concomitant]
     Route: 065
     Dates: start: 20100815, end: 20101017

REACTIONS (14)
  - NASAL DISORDER [None]
  - TOOTH DISORDER [None]
  - GASTROOESOPHAGEAL REFLUX DISEASE [None]
  - CONSTIPATION [None]
  - UTERINE DISORDER [None]
  - FOOT FRACTURE [None]
  - ANAEMIA POSTOPERATIVE [None]
  - VITAMIN D DEFICIENCY [None]
  - THROMBOCYTOPENIA [None]
  - MOBILITY DECREASED [None]
  - HYPOKALAEMIA [None]
  - BLOOD CHOLESTEROL INCREASED [None]
  - FEMUR FRACTURE [None]
  - ARTHRITIS [None]
